FAERS Safety Report 5345781-8 (Version None)
Quarter: 2007Q2

REPORT INFORMATION
  Report Type: 
  Country: None (occurrence: None)
  Receive Date: 20070601
  Receipt Date: 20070523
  Transmission Date: 20071010
  Serious: Yes (Life-Threatening, Disabling)
  Sender: FDA-Public Use
  Company Number: OSCN-NO-0705S-0215

PATIENT
  Age: 43 Year
  Sex: Male

DRUGS (1)
  1. OMNISCAN [Suspect]
     Indication: RENAL TRANSPLANT
     Dosage: 15 ML, SINGLE DOSE, I.V.
     Route: 042
     Dates: start: 20000718, end: 20000718

REACTIONS (3)
  - MUSCULAR WEAKNESS [None]
  - PAIN [None]
  - SCLEREMA [None]
